FAERS Safety Report 10436955 (Version 1)
Quarter: 2014Q3

REPORT INFORMATION
  Report Type: Spontaneous
  Country: NL (occurrence: NL)
  Receive Date: 20140908
  Receipt Date: 20140908
  Transmission Date: 20150326
  Serious: Yes (Life-Threatening)
  Sender: FDA-Public Use
  Company Number: NL-SA-2014SA119014

PATIENT
  Age: 68 Year
  Sex: Male
  Weight: 65 kg

DRUGS (15)
  1. CARBASALATE CALCIUM [Concomitant]
     Active Substance: CARBASALATE
     Route: 048
  2. LANTUS SOLOSTAR [Concomitant]
     Active Substance: INSULIN GLARGINE
     Route: 058
  3. BUMETANIDE. [Concomitant]
     Active Substance: BUMETANIDE
     Route: 048
  4. PLAVIX [Suspect]
     Active Substance: CLOPIDOGREL BISULFATE
     Indication: ACUTE CORONARY SYNDROME
     Route: 048
     Dates: start: 20140820, end: 20140826
  5. LACTULOSE. [Concomitant]
     Active Substance: LACTULOSE
     Route: 048
  6. METOPROLOL [Concomitant]
     Active Substance: METOPROLOL
     Route: 048
  7. NITROGLYCERINE [Concomitant]
     Active Substance: NITROGLYCERIN
     Route: 060
  8. COLECALCIFEROL [Concomitant]
     Active Substance: CHOLECALCIFEROL
     Route: 058
  9. VITAMIN K [Concomitant]
     Active Substance: PHYTONADIONE
     Route: 042
  10. IPRATROPIUM BROMIDE. [Concomitant]
     Active Substance: IPRATROPIUM BROMIDE
     Route: 055
  11. ISOSORBIDE MONONITRATE. [Concomitant]
     Active Substance: ISOSORBIDE MONONITRATE
     Route: 048
  12. NOVORAPID [Concomitant]
     Active Substance: INSULIN ASPART
     Route: 058
  13. ERYTHROPOIETIN [Concomitant]
     Active Substance: ERYTHROPOIETIN
     Dosage: 8000 IE/WEEKLY
     Route: 058
  14. VANCOMYCIN [Concomitant]
     Active Substance: VANCOMYCIN
  15. PANTOPRAZOLE [Interacting]
     Active Substance: PANTOPRAZOLE SODIUM
     Route: 048
     Dates: start: 20100101

REACTIONS (2)
  - Drug interaction [Unknown]
  - Acute hepatic failure [Recovering/Resolving]

NARRATIVE: CASE EVENT DATE: 20140825
